FAERS Safety Report 25090299 (Version 1)
Quarter: 2025Q1

REPORT INFORMATION
  Report Type: Report from Study
  Country: US (occurrence: US)
  Receive Date: 20250318
  Receipt Date: 20250318
  Transmission Date: 20250409
  Serious: No
  Sender: AVERITAS
  Company Number: US-GRUNENTHAL-2025-104248

PATIENT
  Sex: Male

DRUGS (3)
  1. QUTENZA [Suspect]
     Active Substance: CAPSAICIN
     Indication: Diabetic neuropathy
     Route: 061
     Dates: start: 20250127, end: 20250127
  2. UNSPECIFIED INGREDIENT [Concomitant]
     Active Substance: UNSPECIFIED INGREDIENT
     Route: 065
  3. UNSPECIFIED INGREDIENT [Concomitant]
     Active Substance: UNSPECIFIED INGREDIENT
     Route: 065

REACTIONS (1)
  - Application site pain [Unknown]
